FAERS Safety Report 13155428 (Version 1)
Quarter: 2017Q1

REPORT INFORMATION
  Report Type: Report from Study
  Country: DE (occurrence: DE)
  Receive Date: 20170126
  Receipt Date: 20170126
  Transmission Date: 20170428
  Serious: Yes (Hospitalization)
  Sender: FDA-Public Use
  Company Number: DE-TAKEDA-2015TUS015991

PATIENT
  Age: 58 Year
  Sex: Male
  Weight: 88 kg

DRUGS (8)
  1. BISOPROLOL [Concomitant]
     Active Substance: BISOPROLOL
     Indication: CARDIAC DISORDER
     Dosage: 10 MG, QD
  2. ACETYLSALICYLIC ACID [Concomitant]
     Active Substance: ASPIRIN
     Indication: CARDIAC DISORDER
     Dosage: 100 MG, QD
  3. PANTOPRAZOLE [Concomitant]
     Active Substance: PANTOPRAZOLE SODIUM
     Indication: COLITIS ULCERATIVE
     Dosage: 20 MG, QD
     Dates: start: 2015
  4. BETNESOL [Concomitant]
     Active Substance: BETAMETHASONE
     Indication: COLITIS ULCERATIVE
     Dosage: UNK
     Dates: start: 2015
  5. METOPROLOL. [Concomitant]
     Active Substance: METOPROLOL
     Dosage: 95 MG, QD
  6. TOREM [Concomitant]
     Active Substance: TORSEMIDE
     Indication: CARDIAC DISORDER
     Dosage: 5 MG, UNK
  7. VEDOLIZUMAB [Suspect]
     Active Substance: VEDOLIZUMAB
     Indication: COLITIS ULCERATIVE
     Dosage: 300 MG, UNK
     Route: 065
     Dates: start: 20150811
  8. PREDNISOLONE. [Concomitant]
     Active Substance: PREDNISOLONE
     Indication: COLITIS ULCERATIVE
     Dosage: UNK, QD
     Dates: start: 2015

REACTIONS (3)
  - Atrial fibrillation [Recovered/Resolved]
  - Atrial fibrillation [Recovered/Resolved]
  - Disease recurrence [Recovered/Resolved]

NARRATIVE: CASE EVENT DATE: 20150725
